FAERS Safety Report 20560253 (Version 1)
Quarter: 2022Q1

REPORT INFORMATION
  Report Type: Spontaneous
  Country: US (occurrence: US)
  Receive Date: 20220307
  Receipt Date: 20220307
  Transmission Date: 20220423
  Serious: No
  Sender: FDA-Public Use
  Company Number: US-GALDERMA-US2022001948

PATIENT

DRUGS (5)
  1. PROACTIV MD ADAPALENE ACNE TREATMENT [Suspect]
     Active Substance: ADAPALENE
     Indication: Scar
     Dosage: 1 DOSAGE FORM, QD, EVERY NIGHT
     Route: 061
     Dates: start: 202202, end: 20220216
  2. Proactiv MD Ultra Gentle Cleanser [Concomitant]
     Indication: Scar
     Dosage: 1 DOSAGE FORM, BID, 2 OR MORE TIMES A DAY
     Route: 061
     Dates: start: 202202, end: 20220216
  3. Proactiv MD Ultra Hydrating Moisturizer [Concomitant]
     Indication: Scar
     Dosage: 1 DOSAGE FORM, BID, 2 OR MORE TIMES A DAY
     Route: 061
     Dates: start: 202202, end: 20220216
  4. PROACTIV ACNE BODY WASH [Concomitant]
     Active Substance: SALICYLIC ACID
     Indication: Scar
     Dosage: 1 DOSAGE FORM, BID,  2 OR MORE TIMES A DAY
     Route: 061
     Dates: start: 202202, end: 20220216
  5. Proactiv Amazonian Clay Mask [Concomitant]
     Indication: Scar
     Dosage: 1 DOSAGE FORM, BID, 2 OR MORE TIMES A DAY
     Route: 061
     Dates: start: 202202, end: 20220216

REACTIONS (5)
  - Acne [Recovering/Resolving]
  - Dry skin [Recovering/Resolving]
  - Rash [Recovering/Resolving]
  - Scab [Recovering/Resolving]
  - Product use in unapproved indication [Recovered/Resolved]

NARRATIVE: CASE EVENT DATE: 20220201
